FAERS Safety Report 15902883 (Version 1)
Quarter: 2019Q1

REPORT INFORMATION
  Report Type: Spontaneous
  Country: FR (occurrence: FR)
  Receive Date: 20190202
  Receipt Date: 20190202
  Transmission Date: 20190417
  Serious: Yes (Hospitalization, Other)
  Sender: FDA-Public Use
  Company Number: FR-AXELLIA-002195

PATIENT
  Age: 45 Year
  Sex: Female

DRUGS (3)
  1. COLISTIN [Suspect]
     Active Substance: COLISTIN
     Indication: INFECTION
     Dosage: 9 MIU OF (CMS) PER DAY IN 3 DOSES WITHOUT LOADING DOSE. IV THERAPY STOPPED AT 21 DAYS
     Route: 042
  2. MEROPENEM. [Concomitant]
     Active Substance: MEROPENEM
     Indication: INFECTION
  3. TIGECYCLINE. [Suspect]
     Active Substance: TIGECYCLINE
     Indication: INFECTION
     Dosage: 100 MG PER DAY IN 2 DOSES AFTER A LOADING DOSE OF 100 MG

REACTIONS (1)
  - Acute kidney injury [Unknown]
